FAERS Safety Report 7330758-3 (Version None)
Quarter: 2011Q1

REPORT INFORMATION
  Report Type: 
  Country: None (occurrence: None)
  Receive Date: 20110225
  Receipt Date: 20110225
  Transmission Date: 20110831
  Serious: Yes (Hospitalization)
  Sender: FDA-Public Use
  Company Number: None

PATIENT
  Age: 61 Year
  Sex: Male
  Weight: 82 kg

DRUGS (1)
  1. SORAFENIB [Suspect]
     Indication: NEOPLASM MALIGNANT
     Dosage: 400 BID PO
     Route: 048
     Dates: start: 20110203

REACTIONS (5)
  - VOMITING [None]
  - FATIGUE [None]
  - PANCREATITIS [None]
  - NAUSEA [None]
  - ABDOMINAL PAIN [None]
